FAERS Safety Report 8330323-5 (Version None)
Quarter: 2012Q2

REPORT INFORMATION
  Report Type: 
  Country: None (occurrence: None)
  Receive Date: 20120502
  Receipt Date: 20120423
  Transmission Date: 20120825
  Serious: Yes (Hospitalization)
  Sender: FDA-Public Use
  Company Number: US-ACTELION-A-US2011-46422

PATIENT

DRUGS (4)
  1. REVATIO [Concomitant]
  2. TRACLEER [Suspect]
     Indication: PULMONARY ARTERIAL HYPERTENSION
     Dosage: UNK
     Route: 048
     Dates: start: 20041008
  3. TRACLEER [Suspect]
     Route: 048
  4. GABAPENTIN [Concomitant]

REACTIONS (15)
  - BLOOD POTASSIUM DECREASED [None]
  - BLOOD IRON DECREASED [None]
  - PAIN IN JAW [None]
  - TRANSFUSION [None]
  - FLUSHING [None]
  - BALANCE DISORDER [None]
  - COUGH [None]
  - VERTIGO [None]
  - DIZZINESS [None]
  - HEADACHE [None]
  - ANAEMIA [None]
  - ASTHENIA [None]
  - OEDEMA PERIPHERAL [None]
  - MEDICATION ERROR [None]
  - CHEST PAIN [None]
